FAERS Safety Report 8454975-4 (Version None)
Quarter: 2012Q2

REPORT INFORMATION
  Report Type: 
  Country: None (occurrence: None)
  Receive Date: 20120621
  Receipt Date: 20120613
  Transmission Date: 20120825
  Serious: Yes (Other)
  Sender: FDA-Public Use
  Company Number: US-SANOFI-AVENTIS-2012SA042598

PATIENT
  Sex: Male

DRUGS (2)
  1. NOVOLOG [Concomitant]
  2. LANTUS [Suspect]
     Indication: TYPE 2 DIABETES MELLITUS
     Route: 058

REACTIONS (5)
  - WEIGHT INCREASED [None]
  - LIMB INJURY [None]
  - BLOOD GLUCOSE INCREASED [None]
  - TOE AMPUTATION [None]
  - DIABETIC FOOT [None]
